FAERS Safety Report 4591098-9 (Version None)
Quarter: 2005Q1

REPORT INFORMATION
  Report Type: 
  Country: None (occurrence: None)
  Receive Date: 20050218
  Receipt Date: 20050202
  Transmission Date: 20050727
  Serious: Yes (Death, Life-Threatening)
  Sender: FDA-Public Use
  Company Number: DSA_25114_2004

PATIENT
  Age: 76 Year
  Sex: Male

DRUGS (5)
  1. RENIVACE [Suspect]
     Dosage: 1.25 MG Q DAY PO
     Route: 048
     Dates: start: 20040918, end: 20040921
  2. VANCOMYCIN HYDROCHLORIDE [Suspect]
     Dosage: 1 G Q DAY IV
     Route: 042
     Dates: start: 20040915, end: 20040921
  3. GASTER [Concomitant]
  4. MULTIVITAMIN ADDITIVE [Concomitant]
  5. BISOLVON [Concomitant]

REACTIONS (11)
  - ALANINE AMINOTRANSFERASE INCREASED [None]
  - ASPARTATE AMINOTRANSFERASE INCREASED [None]
  - BLOOD CREATININE DECREASED [None]
  - BLOOD LACTATE DEHYDROGENASE INCREASED [None]
  - CONDITION AGGRAVATED [None]
  - HAEMATOCRIT DECREASED [None]
  - HAEMOGLOBIN DECREASED [None]
  - INTERSTITIAL LUNG DISEASE [None]
  - PNEUMONIA ASPIRATION [None]
  - RESPIRATORY FAILURE [None]
  - SUBDURAL HAEMATOMA [None]
